FAERS Safety Report 9209040 (Version 1)
Quarter: 2013Q1

REPORT INFORMATION
  Report Type: Spontaneous
  Country: US (occurrence: None)
  Receive Date: 20120817
  Receipt Date: 20120817
  Transmission Date: 20140127
  Serious: Yes (Other)
  Sender: FDA-Public Use
  Company Number: ADR-2012-01113

PATIENT
  Age: 45 Year
  Sex: Female

DRUGS (4)
  1. LIORESAL INTRATHECAL (BACLOFEN INJECTION) [Suspect]
     Indication: PAIN
     Dosage: MCG/ML
  2. LIORESAL INTRATHECAL (BACLOFEN INJECTION) [Suspect]
     Indication: COMPLEX REGIONAL PAIN SYNDROME
     Dosage: MCG/ML
  3. SUFENTANIL [Concomitant]
  4. CLONIDINE [Concomitant]

REACTIONS (1)
  - Drug withdrawal syndrome [None]
